FAERS Safety Report 6199464-5 (Version None)
Quarter: 2009Q2

REPORT INFORMATION
  Report Type: 
  Country: None (occurrence: None)
  Receive Date: 20090522
  Receipt Date: 20090514
  Transmission Date: 20091009
  Serious: Yes (Other)
  Sender: FDA-Public Use
  Company Number: US-PFIZER INC-2006033579

PATIENT
  Sex: Female

DRUGS (9)
  1. PROVERA [Suspect]
     Indication: HORMONE REPLACEMENT THERAPY
     Dosage: UNK
     Route: 048
     Dates: start: 19820601, end: 19980101
  2. OGEN [Suspect]
     Indication: HORMONE REPLACEMENT THERAPY
     Dosage: UNK
     Route: 048
     Dates: start: 19820601, end: 19960101
  3. ESTROPIPATE [Suspect]
     Indication: HORMONE REPLACEMENT THERAPY
     Dosage: UNK
     Route: 065
     Dates: start: 19970101, end: 19980101
  4. COUMADIN [Concomitant]
     Indication: CARDIOMYOPATHY
     Dosage: UNK
     Dates: start: 19950101, end: 20020101
  5. COREG [Concomitant]
     Indication: CARDIOMYOPATHY
     Dosage: UNK
     Dates: start: 19950101
  6. QUINAPRIL [Concomitant]
     Indication: CARDIOMYOPATHY
     Dosage: UNK
     Dates: start: 19950101
  7. FUROSEMIDE [Concomitant]
     Indication: CARDIOMYOPATHY
     Dosage: UNK
     Dates: start: 19950101
  8. POTASSIUM CHLORIDE [Concomitant]
     Indication: CARDIOMYOPATHY
     Dosage: UNK
     Dates: start: 19950101
  9. ACCUPRIL [Concomitant]
     Indication: BLOOD PRESSURE
     Dosage: UNK
     Dates: start: 19950101

REACTIONS (1)
  - BREAST CANCER [None]
